FAERS Safety Report 7979968 (Version 4)
Quarter: 2013Q3

REPORT INFORMATION
  Report Type: Report from Study
  Country: AU (occurrence: AU)
  Receive Date: 20110608
  Receipt Date: 20130719
  Transmission Date: 20140515
  Serious: Yes (Death, Hospitalization, Other)
  Sender: FDA-Public Use
  Company Number: AU-ROCHE-780985

PATIENT
  Age: 66 Year
  Sex: Male

DRUGS (12)
  1. ACTEMRA [Suspect]
     Indication: RHEUMATOID ARTHRITIS
     Dosage: FREQUENCY WAS NOT REPORTED. INTERRUPTED THERAPY
     Route: 042
     Dates: start: 20110406, end: 20110509
  2. ETANERCEPT [Suspect]
     Indication: RHEUMATOID ARTHRITIS
     Route: 058
     Dates: start: 20100630, end: 20101122
  3. ADALIMUMAB [Suspect]
     Indication: RHEUMATOID ARTHRITIS
     Route: 058
     Dates: start: 20101206
  4. NIFEDIPINE [Concomitant]
     Indication: HYPERTENSION
     Route: 048
     Dates: start: 20040423
  5. CALCITRIOL [Concomitant]
     Route: 048
  6. PREDNISOLONE [Concomitant]
     Route: 048
  7. FOSAMAX [Concomitant]
     Route: 048
  8. DICLOFENAC [Concomitant]
     Indication: ARTHRALGIA
     Route: 048
  9. NICORANDIL [Concomitant]
     Route: 048
  10. ATORVASTATIN [Concomitant]
     Route: 048
  11. ISOSORBIDE DINITRATE [Concomitant]
     Indication: ANGINA PECTORIS
     Route: 048
  12. RANITIDINE [Concomitant]
     Route: 065

REACTIONS (5)
  - Myocardial infarction [Fatal]
  - Pancreatic mass [Fatal]
  - Dyspnoea [Not Recovered/Not Resolved]
  - Anaemia [Recovered/Resolved]
  - Pancreatic carcinoma [Unknown]
